FAERS Safety Report 9774291 (Version 1)
Quarter: 2013Q4

REPORT INFORMATION
  Report Type: Spontaneous
  Country: DE (occurrence: DE)
  Receive Date: 20131220
  Receipt Date: 20131220
  Transmission Date: 20140711
  Serious: Yes (Other)
  Sender: FDA-Public Use
  Company Number: DE-CELGENEUS-062-21880-13121560

PATIENT
  Sex: Female

DRUGS (2)
  1. REVLIMID [Suspect]
     Indication: ACUTE MYELOID LEUKAEMIA
     Route: 048
     Dates: start: 201305
  2. VIDAZA [Suspect]
     Indication: ACUTE MYELOID LEUKAEMIA
     Route: 065
     Dates: start: 201305

REACTIONS (6)
  - Pleural effusion [Unknown]
  - Pneumonia [Unknown]
  - Klebsiella sepsis [Unknown]
  - Renal failure acute [Unknown]
  - Impaired healing [Unknown]
  - Wound infection [Unknown]
